FAERS Safety Report 6465167-2 (Version None)
Quarter: 2009Q4

REPORT INFORMATION
  Report Type: 
  Country: None (occurrence: None)
  Receive Date: 20091201
  Receipt Date: 20091117
  Transmission Date: 20100525
  Serious: Yes (Death, Hospitalization)
  Sender: FDA-Public Use
  Company Number: FR-GENENTECH-294532

PATIENT
  Sex: Female
  Weight: 49 kg

DRUGS (6)
  1. MABTHERA [Suspect]
     Indication: RHEUMATOID ARTHRITIS
     Dosage: UNK
     Route: 042
     Dates: start: 20081201
  2. MABTHERA [Suspect]
     Dosage: 1 G, UNK
     Route: 042
     Dates: start: 20090918, end: 20090918
  3. IMUREL [Suspect]
     Indication: RHEUMATOID ARTHRITIS
     Dosage: 50 MG, UNK
     Route: 048
     Dates: start: 20090101, end: 20090928
  4. CORTISONE [Concomitant]
     Indication: MIGRAINE
     Dosage: UNK
  5. ZOMIGORO [Concomitant]
     Indication: MIGRAINE
     Dosage: UNK
  6. DAFALGAN [Concomitant]
     Indication: PAIN
     Dosage: UNK

REACTIONS (2)
  - BLOOD BILIRUBIN INCREASED [None]
  - CYTOLYTIC HEPATITIS [None]
